FAERS Safety Report 8890324 (Version 1)
Quarter: 2012Q4

REPORT INFORMATION
  Report Type: 
  Country: FR (occurrence: FR)
  Receive Date: 20121107
  Receipt Date: 20121107
  Transmission Date: 20130627
  Serious: Yes (Hospitalization)
  Sender: FDA-Public Use
  Company Number: PHHY2012FR101774

PATIENT
  Sex: Male

DRUGS (6)
  1. TASIGNA [Suspect]
     Indication: CHRONIC MYELOID LEUKAEMIA
     Dosage: 600 mg, daily
     Dates: start: 20120215
  2. TASIGNA [Suspect]
     Dosage: 400 mg, daily
     Dates: start: 20120316, end: 20120402
  3. FLUDEX [Concomitant]
     Route: 048
  4. TRIATEC [Concomitant]
     Route: 048
  5. LERCAN [Concomitant]
     Dosage: 20 mg, daily
  6. ANTIDIABETICS [Concomitant]

REACTIONS (6)
  - Diabetes mellitus [Recovered/Resolved with Sequelae]
  - Glycosylated haemoglobin increased [Recovered/Resolved with Sequelae]
  - Blood glucose increased [Recovered/Resolved with Sequelae]
  - Concomitant disease aggravated [Recovered/Resolved with Sequelae]
  - Eczema [Unknown]
  - Hypoglycaemia [Unknown]
